FAERS Safety Report 9077155 (Version 1)
Quarter: 2013Q1

REPORT INFORMATION
  Report Type: Report from Study
  Country: US (occurrence: US)
  Receive Date: 20130129
  Receipt Date: 20130129
  Transmission Date: 20140127
  Serious: No
  Sender: FDA-Public Use
  Company Number: US-ABBOTT-12P-163-0949980-00

PATIENT
  Age: 37 None
  Sex: Female
  Weight: 63.56 kg

DRUGS (4)
  1. HUMIRA 40 MG/0.8 ML PEN [Suspect]
     Indication: CROHN^S DISEASE
  2. BC PILLS [Concomitant]
     Indication: PRODUCT USED FOR UNKNOWN INDICATION
  3. ENDOCORT [Concomitant]
     Indication: PRODUCT USED FOR UNKNOWN INDICATION
  4. DICYCLOMINE [Concomitant]
     Indication: PRODUCT USED FOR UNKNOWN INDICATION

REACTIONS (10)
  - Device malfunction [Unknown]
  - Injection site thrombosis [Recovered/Resolved]
  - Injection site pain [Unknown]
  - Fatigue [Not Recovered/Not Resolved]
  - Injection site swelling [Not Recovered/Not Resolved]
  - Injection site urticaria [Not Recovered/Not Resolved]
  - Injection site bruising [Not Recovered/Not Resolved]
  - Needle issue [Unknown]
  - Incorrect dose administered [Unknown]
  - Crohn^s disease [Not Recovered/Not Resolved]
